FAERS Safety Report 7197378-5 (Version None)
Quarter: 2010Q4

REPORT INFORMATION
  Report Type: 
  Country: None (occurrence: None)
  Receive Date: 20101213
  Receipt Date: 20101202
  Transmission Date: 20110411
  Serious: Yes (Other)
  Sender: FDA-Public Use
  Company Number: 2010120006

PATIENT
  Age: 14 Year
  Sex: Female

DRUGS (1)
  1. D-PENICILLAMINE [Suspect]
     Indication: HEPATO-LENTICULAR DEGENERATION
     Dosage: 250 MG, DAILY

REACTIONS (5)
  - DYSTONIA [None]
  - MUSCULOSKELETAL STIFFNESS [None]
  - NO THERAPEUTIC RESPONSE [None]
  - OPISTHOTONUS [None]
  - TORTICOLLIS [None]
